FAERS Safety Report 7120273-4 (Version None)
Quarter: 2010Q4

REPORT INFORMATION
  Report Type: 
  Country: None (occurrence: None)
  Receive Date: 20101123
  Receipt Date: 20101112
  Transmission Date: 20110411
  Serious: Yes (Hospitalization)
  Sender: FDA-Public Use
  Company Number: BR-ELI_LILLY_AND_COMPANY-BR201011003845

PATIENT
  Sex: Female
  Weight: 55 kg

DRUGS (2)
  1. FORTEO [Suspect]
     Indication: OSTEOPOROSIS
     Dosage: UNK, DAILY (1/D)
     Route: 065
     Dates: start: 20100501
  2. DIMORF [Concomitant]
     Indication: PAIN
     Dosage: UNK, EVERY 6 HRS
     Route: 065

REACTIONS (4)
  - BONE DENSITY DECREASED [None]
  - NEPHROLITHIASIS [None]
  - PAIN [None]
  - SPINAL FRACTURE [None]
